FAERS Safety Report 5946442-4 (Version None)
Quarter: 2008Q4

REPORT INFORMATION
  Report Type: 
  Country: None (occurrence: None)
  Receive Date: 20081106
  Receipt Date: 20081106
  Transmission Date: 20090506
  Serious: Yes (Other)
  Sender: FDA-Public Use
  Company Number: None

PATIENT
  Age: 54 Year
  Sex: Female
  Weight: 90.2658 kg

DRUGS (2)
  1. MIRAPEX [Suspect]
     Indication: FIBROMYALGIA
     Dosage: .25  3 PER DAY  PO
     Route: 048
     Dates: start: 20010101, end: 20081029
  2. MIRAPEX [Suspect]
     Indication: RESTLESS LEGS SYNDROME
     Dosage: .25  3 PER DAY  PO
     Route: 048
     Dates: start: 20010101, end: 20081029

REACTIONS (1)
  - IMPULSE-CONTROL DISORDER [None]
